FAERS Safety Report 5530996-6 (Version None)
Quarter: 2007Q4

REPORT INFORMATION
  Report Type: 
  Country: None (occurrence: None)
  Receive Date: 20071130
  Receipt Date: 20071120
  Transmission Date: 20080405
  Serious: Yes (Other)
  Sender: FDA-Public Use
  Company Number: US-PFIZER INC-2007093336

PATIENT
  Sex: Female
  Weight: 58.4 kg

DRUGS (7)
  1. AROMASIN [Suspect]
     Indication: BREAST CANCER
     Route: 048
     Dates: start: 20050811, end: 20071105
  2. ZOLOFT [Concomitant]
     Route: 048
  3. FOSAMAX [Concomitant]
     Route: 048
  4. XANAX [Concomitant]
     Route: 048
  5. BENADRYL [Concomitant]
     Route: 048
  6. TYLENOL [Concomitant]
     Route: 048
  7. IBUPROFEN [Concomitant]
     Route: 048

REACTIONS (1)
  - UTERINE CANCER [None]
